FAERS Safety Report 7770359-6 (Version None)
Quarter: 2011Q3

REPORT INFORMATION
  Report Type: 
  Country: None (occurrence: None)
  Receive Date: 20110922
  Receipt Date: 20100825
  Transmission Date: 20111222
  Serious: No
  Sender: FDA-Public Use
  Company Number: US-ASTRAZENECA-2007UW27703

PATIENT
  Age: 10560 Day
  Sex: Female
  Weight: 175.1 kg

DRUGS (10)
  1. SEROQUEL [Suspect]
     Indication: DEPRESSION
     Dosage: 100 MG-150 MG
     Route: 048
     Dates: start: 20051001, end: 20071201
  2. SEROQUEL [Suspect]
     Route: 048
     Dates: start: 20051003, end: 20071205
  3. SEROQUEL [Suspect]
     Route: 048
     Dates: start: 20051003, end: 20071205
  4. ABILIFY [Concomitant]
  5. ZYPREXA [Concomitant]
  6. GEODON [Concomitant]
     Dates: start: 20070101
  7. SEROQUEL [Suspect]
     Indication: ANXIETY
     Dosage: 100 MG-150 MG
     Route: 048
     Dates: start: 20051001, end: 20071201
  8. SEROQUEL [Suspect]
     Indication: BIPOLAR DISORDER
     Dosage: 100 MG-150 MG
     Route: 048
     Dates: start: 20051001, end: 20071201
  9. SEROQUEL [Suspect]
     Route: 048
     Dates: start: 20051003, end: 20071205
  10. RISPERDAL [Concomitant]
     Dates: start: 20020901, end: 20021201

REACTIONS (2)
  - DIABETES MELLITUS [None]
  - DIABETIC COMPLICATION [None]
